FAERS Safety Report 18338886 (Version 1)
Quarter: 2020Q4

REPORT INFORMATION
  Report Type: Spontaneous
  Country: US (occurrence: US)
  Receive Date: 20201001
  Receipt Date: 20201001
  Transmission Date: 20210113
  Serious: Yes (Disabling)
  Sender: FDA-Public Use
  Company Number: None

PATIENT
  Age: 67 Year
  Sex: Male
  Weight: 70.31 kg

DRUGS (1)
  1. ROSUVASTATIN 20MG [Suspect]
     Active Substance: ROSUVASTATIN
     Indication: BLOOD CHOLESTEROL INCREASED
     Dosage: ?          QUANTITY:20 MG MILLIGRAM(S);?
     Route: 048
     Dates: start: 20200821, end: 20200821

REACTIONS (8)
  - Chromaturia [None]
  - Asthenia [None]
  - Myalgia [None]
  - Hypersomnia [None]
  - Urine analysis abnormal [None]
  - Foreign body in throat [None]
  - Dysphagia [None]
  - Disturbance in attention [None]

NARRATIVE: CASE EVENT DATE: 20200821
